FAERS Safety Report 4859557-9 (Version None)
Quarter: 2005Q4

REPORT INFORMATION
  Report Type: 
  Country: None (occurrence: None)
  Receive Date: 20051219
  Receipt Date: 20050622
  Transmission Date: 20060501
  Serious: No
  Sender: FDA-Public Use
  Company Number: US-GLAXOSMITHKLINE-A0563759A

PATIENT
  Age: 41 Year
  Sex: Female

DRUGS (4)
  1. NICODERM CQ [Suspect]
  2. NICODERM CQ [Suspect]
  3. NEURONTIN [Concomitant]
  4. DILANTIN [Concomitant]

REACTIONS (3)
  - APPLICATION SITE DERMATITIS [None]
  - EMOTIONAL DISTRESS [None]
  - HYPERSENSITIVITY [None]
